FAERS Safety Report 6186467-X (Version None)
Quarter: 2009Q2

REPORT INFORMATION
  Report Type: 
  Country: None (occurrence: None)
  Receive Date: 20090511
  Receipt Date: 20090429
  Transmission Date: 20091009
  Serious: Yes (Life-Threatening, Hospitalization, Disabling, Other)
  Sender: FDA-Public Use
  Company Number: GB-BAUSCH-2009BL002006

PATIENT
  Age: 23 Year
  Sex: Female

DRUGS (13)
  1. PREDNISOLONE [Suspect]
     Indication: TUBERCULOSIS OF CENTRAL NERVOUS SYSTEM
     Route: 048
  2. ACYCLOVIR SODIUM [Concomitant]
     Indication: HERPES ZOSTER
     Dates: start: 20090329
  3. ADCAL-D3 [Concomitant]
     Indication: OSTEOPOROSIS PROPHYLAXIS
     Route: 048
  4. AMITRIPTLINE HYDROCHLORIDE TAB [Concomitant]
     Indication: NEURALGIA
     Route: 048
  5. CLEXANE [Concomitant]
     Indication: THROMBOSIS PROPHYLAXIS
     Route: 058
  6. DICLOFENAC [Concomitant]
     Indication: PAIN
     Route: 048
  7. ETHAMBUTOL HCL [Concomitant]
     Indication: TUBERCULOSIS
     Route: 048
  8. FERROUS SULFATE TAB [Concomitant]
     Indication: ANAEMIA
     Route: 048
  9. FISH OIL [Concomitant]
     Indication: DRUG USE FOR UNKNOWN INDICATION
     Route: 048
  10. MAGNESIUM HYDROXIDE TAB [Concomitant]
     Indication: DRUG USE FOR UNKNOWN INDICATION
     Route: 048
  11. PARACETAMOL [Concomitant]
     Indication: PAIN
     Route: 048
  12. PYRIDOXINE [Concomitant]
     Indication: TUBERCULOSIS
     Route: 048
  13. RIFINAH [Concomitant]
     Indication: TUBERCULOSIS
     Route: 048

REACTIONS (3)
  - DRUG EXPOSURE DURING PREGNANCY [None]
  - HERPES ZOSTER [None]
  - PANCREATITIS ACUTE [None]
